FAERS Safety Report 10071406 (Version 1)
Quarter: 2014Q2

REPORT INFORMATION
  Report Type: Spontaneous
  Country: JP (occurrence: JP)
  Receive Date: 20140410
  Receipt Date: 20140410
  Transmission Date: 20141212
  Serious: Yes (Death, Other)
  Sender: FDA-Public Use
  Company Number: PHHY2014JP041012

PATIENT
  Age: 70 Day
  Sex: Female

DRUGS (7)
  1. METHYLPREDNISOLONE [Suspect]
     Dosage: 2-3 MG/KG, UNK
  2. CARBOPLATIN [Suspect]
     Indication: HAEMANGIOMA-THROMBOCYTOPENIA SYNDROME
     Dosage: 15 MG/KG, UNK
  3. ACTINOMYCIN D [Suspect]
     Indication: HAEMANGIOMA-THROMBOCYTOPENIA SYNDROME
     Dosage: 0.015 MG/KG, QD
  4. CYCLOPHOSPHAMIDE [Suspect]
     Indication: HAEMANGIOMA-THROMBOCYTOPENIA SYNDROME
     Dosage: 40 MG/KG, UNK
  5. VINCRISTINE [Concomitant]
     Indication: HAEMANGIOMA-THROMBOCYTOPENIA SYNDROME
     Dosage: 0.05 MG/KG, UNK
  6. INTERFERON [Concomitant]
     Indication: HAEMANGIOMA-THROMBOCYTOPENIA SYNDROME
  7. RADIATION THERAPY [Concomitant]
     Indication: HAEMANGIOMA-THROMBOCYTOPENIA SYNDROME

REACTIONS (4)
  - Death [Fatal]
  - Drug resistance [Unknown]
  - Neutropenia [Unknown]
  - Drug ineffective [Unknown]
